FAERS Safety Report 10056496 (Version 1)
Quarter: 2014Q2

REPORT INFORMATION
  Report Type: Spontaneous
  Country: US (occurrence: US)
  Receive Date: 20140403
  Receipt Date: 20140403
  Transmission Date: 20141212
  Serious: No
  Sender: FDA-Public Use
  Company Number: US-BAXTER-2007BH003894

PATIENT
  Age: 14 Year
  Sex: Male

DRUGS (3)
  1. DIANEAL PD2 AMBU-FLEX [Concomitant]
     Indication: RENAL FAILURE CHRONIC
     Route: 033
  2. CEFAZOLIN SODIUM [Suspect]
     Indication: CULTURE POSITIVE
     Route: 033
     Dates: start: 20070324, end: 20070330
  3. FORTAZ [Suspect]
     Indication: CULTURE POSITIVE
     Route: 033
     Dates: start: 20070324, end: 20070330

REACTIONS (1)
  - Rash [Recovered/Resolved]
